FAERS Safety Report 12398989 (Version 1)
Quarter: 2016Q2

REPORT INFORMATION
  Report Type: Spontaneous
  Country: FR (occurrence: FR)
  Receive Date: 20160524
  Receipt Date: 20160524
  Transmission Date: 20160815
  Serious: Yes (Life-Threatening)
  Sender: FDA-Public Use
  Company Number: FR-IGI LABORATORIES, INC.-1052722

PATIENT
  Age: 69 Year
  Sex: Female

DRUGS (3)
  1. FORTAZ [Suspect]
     Active Substance: CEFTAZIDIME SODIUM
     Indication: ESCHERICHIA INFECTION
     Route: 042
     Dates: start: 20160202, end: 20160208
  2. FORTAZ [Suspect]
     Active Substance: CEFTAZIDIME SODIUM
     Route: 042
     Dates: start: 20160208, end: 20160211
  3. GENTAMICINE [Concomitant]
     Active Substance: GENTAMICIN
     Dates: start: 20160202, end: 20160211

REACTIONS (4)
  - Tremor [Recovered/Resolved]
  - Confusional state [Recovered/Resolved]
  - Pyrexia [Unknown]
  - Cognitive disorder [Recovered/Resolved]

NARRATIVE: CASE EVENT DATE: 20160206
